FAERS Safety Report 16012469 (Version 1)
Quarter: 2019Q1

REPORT INFORMATION
  Report Type: Spontaneous
  Country: FR (occurrence: FR)
  Receive Date: 20190227
  Receipt Date: 20190227
  Transmission Date: 20190418
  Serious: Yes (Hospitalization)
  Sender: FDA-Public Use
  Company Number: FR-TEVA-2019-FR-1016143

PATIENT
  Age: 50 Year
  Sex: Female
  Weight: 72.5 kg

DRUGS (2)
  1. BENDAMUSTINE (CHLORHYDRATE DE) [Suspect]
     Active Substance: BENDAMUSTINE HYDROCHLORIDE
     Indication: ANAPLASTIC LARGE-CELL LYMPHOMA
     Route: 042
     Dates: start: 20181009, end: 20190109
  2. ADCETRIS [Suspect]
     Active Substance: BRENTUXIMAB VEDOTIN
     Indication: ANAPLASTIC LARGE-CELL LYMPHOMA
     Route: 042
     Dates: start: 20181009, end: 20190109

REACTIONS (5)
  - Pancytopenia [Recovering/Resolving]
  - Lung disorder [Not Recovered/Not Resolved]
  - Aplasia [Recovering/Resolving]
  - Cytomegalovirus infection [Not Recovered/Not Resolved]
  - Cytomegalovirus colitis [Recovering/Resolving]

NARRATIVE: CASE EVENT DATE: 20190114
